FAERS Safety Report 9323048 (Version 2)
Quarter: 2013Q2

REPORT INFORMATION
  Report Type: Spontaneous
  Country: JP (occurrence: JP)
  Receive Date: 20130603
  Receipt Date: 20130620
  Transmission Date: 20140414
  Serious: Yes (Hospitalization)
  Sender: FDA-Public Use
  Company Number: JP-AMGEN-JPNSP2013038744

PATIENT
  Age: 60 Year
  Sex: Female
  Weight: 50 kg

DRUGS (42)
  1. GRAN [Suspect]
     Indication: CHEMOTHERAPY
     Dosage: 75 MUG, QD
     Route: 058
     Dates: start: 20130307, end: 20130307
  2. GRAN [Suspect]
     Dosage: 75 MUG, QD
     Route: 058
     Dates: start: 20130308, end: 20130308
  3. GRAN [Suspect]
     Dosage: 75 MUG, QD
     Route: 058
     Dates: start: 20130329, end: 20130329
  4. GRAN [Suspect]
     Dosage: 75 MUG, QD
     Route: 058
     Dates: start: 20130419, end: 20130419
  5. GRAN [Suspect]
     Dosage: 75 MUG, QD
     Route: 058
     Dates: start: 20130420, end: 20130420
  6. GRAN [Suspect]
     Dosage: 75 MUG, QD
     Route: 058
     Dates: start: 20130510, end: 20130510
  7. 5-FU KYOWA [Suspect]
     Indication: BREAST CANCER
     Dosage: 600 MG, UNK
     Route: 041
     Dates: start: 20130222
  8. 5-FU KYOWA [Suspect]
     Dosage: 600 MG, UNK
     Route: 041
     Dates: start: 20130315
  9. 5-FU KYOWA [Suspect]
     Dosage: 500 MG, UNK
     Route: 041
     Dates: start: 20130405
  10. 5-FU KYOWA [Suspect]
     Dosage: 500 MG, UNK
     Route: 041
     Dates: start: 20130426
  11. FARMORUBICINE RTU [Suspect]
     Indication: BREAST CANCER
     Dosage: 120 MG, UNK
     Route: 041
     Dates: start: 20130222
  12. FARMORUBICINE RTU [Suspect]
     Dosage: 600 MG, UNK
     Route: 041
     Dates: start: 20130315
  13. FARMORUBICINE RTU [Suspect]
     Dosage: 100 MG, UNK
     Route: 041
     Dates: start: 20130405
  14. FARMORUBICINE RTU [Suspect]
     Dosage: 100 MG, UNK
     Route: 041
     Dates: start: 20130426
  15. ENDOXAN /00021101/ [Suspect]
     Indication: BREAST CANCER
     Dosage: 600 MG, UNK
     Route: 041
     Dates: start: 20130222
  16. ENDOXAN /00021101/ [Suspect]
     Dosage: 600 MG, UNK
     Route: 041
     Dates: start: 20130315
  17. ENDOXAN /00021101/ [Suspect]
     Dosage: 500 MG, UNK
     Route: 041
     Dates: start: 20130405
  18. ENDOXAN /00021101/ [Suspect]
     Dosage: 500 MG, UNK
     Route: 041
     Dates: start: 20130426
  19. DEXART [Concomitant]
     Dosage: UNK
     Route: 065
  20. ALOXI [Concomitant]
     Dosage: UNK
     Route: 065
  21. SOLYUGEN G [Concomitant]
     Dosage: UNK
     Route: 065
     Dates: start: 20130412, end: 20130412
  22. CIPROXAN                           /00697202/ [Concomitant]
     Dosage: UNK
     Route: 048
     Dates: start: 20130222, end: 20130225
  23. CIPROXAN                           /00697202/ [Concomitant]
     Dosage: UNK
     Route: 048
     Dates: start: 20130307, end: 20130310
  24. CIPROXAN                           /00697202/ [Concomitant]
     Dosage: UNK
     Route: 048
     Dates: start: 20130315, end: 20130318
  25. MAGLAX [Concomitant]
     Dosage: UNK
     Route: 048
  26. MAGLAX [Concomitant]
     Dosage: UNK
     Route: 048
     Dates: start: 20130405, end: 20130504
  27. EMEND                              /01627301/ [Concomitant]
     Dosage: UNK
     Route: 048
     Dates: start: 20130222, end: 20130224
  28. EMEND                              /01627301/ [Concomitant]
     Dosage: UNK
     Route: 048
     Dates: start: 20130315, end: 20130317
  29. EMEND                              /01627301/ [Concomitant]
     Dosage: UNK
     Route: 048
     Dates: start: 20130405, end: 20130407
  30. EMEND                              /01627301/ [Concomitant]
     Dosage: UNK
     Route: 048
     Dates: start: 20130426, end: 20130428
  31. DEXALTIN [Concomitant]
     Dosage: UNK
     Route: 061
     Dates: start: 20130307, end: 20130307
  32. ZYLORIC [Concomitant]
     Dosage: UNK
     Route: 049
     Dates: start: 20130307, end: 20130316
  33. ZYLORIC [Concomitant]
     Dosage: UNK
     Dates: start: 20130327, end: 20130416
  34. ZYLORIC [Concomitant]
     Dosage: UNK
     Dates: start: 20130426, end: 20130505
  35. AZUNOL                             /00317302/ [Concomitant]
     Dosage: UNK
     Route: 049
     Dates: start: 20130315, end: 20130315
  36. LOXONIN [Concomitant]
     Dosage: UNK
     Route: 048
     Dates: start: 20130329, end: 20130329
  37. REBAMIPIDE [Concomitant]
     Dosage: UNK
     Route: 048
     Dates: start: 20130329, end: 20130329
  38. LEVOFLOXACIN HYDRATE [Concomitant]
     Dosage: UNK
     Route: 048
     Dates: start: 20130329, end: 20130405
  39. LEVOFLOXACIN HYDRATE [Concomitant]
     Dosage: UNK
     Route: 048
     Dates: start: 20130414, end: 20130426
  40. FERROMIA                           /00023516/ [Concomitant]
     Dosage: UNK
     Route: 048
     Dates: start: 20130329
  41. FLOMOX                             /01418603/ [Concomitant]
     Dosage: UNK
     Route: 048
     Dates: start: 20130412, end: 20130415
  42. BIOFERMIN R [Concomitant]
     Dosage: UNK
     Route: 048
     Dates: start: 20130412, end: 20130415

REACTIONS (2)
  - Interstitial lung disease [Recovered/Resolved]
  - Pulmonary fibrosis [None]
